FAERS Safety Report 22620507 (Version 1)
Quarter: 2023Q2

REPORT INFORMATION
  Report Type: Spontaneous
  Country: IT (occurrence: IT)
  Receive Date: 20230620
  Receipt Date: 20230620
  Transmission Date: 20230722
  Serious: Yes (Hospitalization, Other)
  Sender: FDA-Public Use
  Company Number: IT-BAXTER-2023BAX023224

PATIENT
  Age: 64 Year
  Sex: Female

DRUGS (14)
  1. BORTEZOMIB [Suspect]
     Active Substance: BORTEZOMIB
     Indication: Plasma cell myeloma
     Dosage: 2.1 MG, DAILY
     Route: 065
     Dates: start: 20211115, end: 20211118
  2. BORTEZOMIB [Suspect]
     Active Substance: BORTEZOMIB
     Dosage: (DOSE RE-INTRODUCED)
     Route: 065
     Dates: start: 20211222
  3. DOXORUBICIN [Suspect]
     Active Substance: DOXORUBICIN
     Indication: Plasma cell myeloma
     Dosage: 35 MILLIGRAM, QD
     Route: 065
     Dates: start: 20211118, end: 20211118
  4. DOXORUBICIN [Suspect]
     Active Substance: DOXORUBICIN
     Dosage: (DOSE RE-INTRODUCED)
     Route: 065
     Dates: start: 20211222
  5. DEXAMETHASONE [Suspect]
     Active Substance: DEXAMETHASONE
     Indication: Plasma cell myeloma
     Dosage: 20 MG, DAILY
     Route: 065
     Dates: start: 20211115, end: 20211118
  6. DEXAMETHASONE [Suspect]
     Active Substance: DEXAMETHASONE
     Dosage: (DOSE RE-INTRODUCED)
     Route: 065
     Dates: start: 20211222
  7. VALACYCLOVIR [Concomitant]
     Active Substance: VALACYCLOVIR HYDROCHLORIDE
     Indication: Prophylaxis
     Dosage: ONGOING
     Route: 065
  8. ERYTHROPOIETIN [Concomitant]
     Active Substance: ERYTHROPOIETIN
     Indication: Anaemia
     Dosage: ONGOING
     Route: 065
  9. CHOLECALCIFEROL [Concomitant]
     Active Substance: CHOLECALCIFEROL
     Indication: Prophylaxis
     Dosage: UNK
     Route: 065
     Dates: end: 20211210
  10. CALCIPARINE [Concomitant]
     Active Substance: HEPARIN CALCIUM
     Indication: Prophylaxis
     Dosage: ONGOING
     Route: 065
  11. PANTOPRAZOLE [Concomitant]
     Active Substance: PANTOPRAZOLE
     Indication: Prophylaxis
     Dosage: ONGOING
     Route: 065
  12. SULFAMETHOXAZOLE\TRIMETHOPRIM [Concomitant]
     Active Substance: SULFAMETHOXAZOLE\TRIMETHOPRIM
     Indication: Prophylaxis
     Dosage: ONGOING
     Route: 065
  13. ALLOPURINOL [Concomitant]
     Active Substance: ALLOPURINOL
     Indication: Prophylaxis
     Dosage: ONGOING
     Route: 065
  14. FENTANYL [Concomitant]
     Active Substance: FENTANYL
     Indication: Pain
     Dosage: UNK
     Route: 065
     Dates: end: 20211210

REACTIONS (3)
  - Acute kidney injury [Recovered/Resolved with Sequelae]
  - Hyperkalaemia [Recovered/Resolved with Sequelae]
  - Off label use [Unknown]

NARRATIVE: CASE EVENT DATE: 20211118
